FAERS Safety Report 21997503 (Version 1)
Quarter: 2023Q1

REPORT INFORMATION
  Report Type: Spontaneous
  Country: DE (occurrence: DE)
  Receive Date: 20230216
  Receipt Date: 20230216
  Transmission Date: 20230418
  Serious: Yes (Congenital Anomaly, Other)
  Sender: FDA-Public Use
  Company Number: DE-EMBRYOTOX-202118443

PATIENT
  Age: 1 Day
  Sex: Male

DRUGS (6)
  1. BISOPROLOL [Suspect]
     Active Substance: BISOPROLOL
     Indication: Product used for unknown indication
     Dosage: 2.5 MILLIGRAM DAILY;  0. - 37.1. GESTATIONAL WEEK
     Route: 064
     Dates: start: 20210910, end: 20220528
  2. PROGESTERONE [Suspect]
     Active Substance: PROGESTERONE
     Indication: Prophylaxis
     Dosage: 09/21 UNTIL 12/21: AFTER IVF AS PART OF FERTILITY TREATMENT, 0.5. - 13.5. GESTATIONAL WEEK
     Route: 064
  3. COMIRNATY [Concomitant]
     Active Substance: TOZINAMERAN
     Indication: COVID-19 immunisation
     Dosage: 3. VACCINATION, 14.3. - 14.3. GESTATIONAL WEEK
     Dates: start: 20211220, end: 20211220
  4. AMOXICILLIN [Concomitant]
     Active Substance: AMOXICILLIN
     Indication: Sinusitis
     Dosage: 3000 MILLIGRAM DAILY; 3000 [MG/D (3X1000) ]/ PROBABLY FOR TWO WEEKS, 8.1. - 8.1. GESTATIONAL WEEK
     Dates: start: 20211106, end: 20211106
  5. OXYTOCIN [Concomitant]
     Active Substance: OXYTOCIN
     Indication: Labour induction
     Dosage: 37.1. - 37.1. GESTATIONAL WEEK
  6. LEVOTHYROXINE SODIUM [Concomitant]
     Active Substance: LEVOTHYROXINE SODIUM
     Indication: Hypothyroidism
     Dosage: 50 MICROGRAM DAILY; 0. - 37.1. GESTATIONAL WEEK
     Dates: start: 20210910, end: 20220528

REACTIONS (2)
  - Hypospadias [Unknown]
  - Foetal exposure during pregnancy [Unknown]

NARRATIVE: CASE EVENT DATE: 20210910
